FAERS Safety Report 5637548-8 (Version None)
Quarter: 2008Q1

REPORT INFORMATION
  Report Type: 
  Country: None (occurrence: None)
  Receive Date: 20080225
  Receipt Date: 20080213
  Transmission Date: 20080703
  Serious: Yes (Other)
  Sender: FDA-Public Use
  Company Number: US-PFIZER INC-2008015236

PATIENT
  Sex: Female

DRUGS (1)
  1. PREGABALIN [Suspect]

REACTIONS (2)
  - HYPERTENSION [None]
  - LARGE INTESTINAL HAEMORRHAGE [None]
